FAERS Safety Report 26203202 (Version 1)
Quarter: 2025Q4

REPORT INFORMATION
  Report Type: Spontaneous
  Country: EU (occurrence: EU)
  Receive Date: 20251226
  Receipt Date: 20251226
  Transmission Date: 20260118
  Serious: Yes (Other)
  Sender: TEVA
  Company Number: None

PATIENT
  Age: 15 Year
  Sex: Female
  Weight: 105 kg

DRUGS (3)
  1. IBUPROFEN [Suspect]
     Active Substance: IBUPROFEN
     Indication: Product used for unknown indication
     Route: 048
     Dates: start: 20251028, end: 20251028
  2. ZOLOFT [Concomitant]
     Active Substance: SERTRALINE HYDROCHLORIDE
     Indication: Product used for unknown indication
     Route: 048
     Dates: start: 20251028, end: 20251028
  3. ALPRAZOLAM [Concomitant]
     Active Substance: ALPRAZOLAM
     Indication: Product used for unknown indication
     Dosage: 1 DF= 1 TABLET
     Route: 048
     Dates: start: 20251028, end: 20251028

REACTIONS (5)
  - Suicide attempt [Unknown]
  - Vertigo [Unknown]
  - Abdominal pain [Unknown]
  - Intentional overdose [Unknown]
  - Fear [Unknown]

NARRATIVE: CASE EVENT DATE: 20251028
